FAERS Safety Report 6800909-5 (Version None)
Quarter: 2010Q2

REPORT INFORMATION
  Report Type: 
  Country: None (occurrence: None)
  Receive Date: 20100629
  Receipt Date: 20100616
  Transmission Date: 20101027
  Serious: Yes (Other)
  Sender: FDA-Public Use
  Company Number: PHBS2003BR08885

PATIENT
  Sex: Male
  Weight: 70 kg

DRUGS (2)
  1. GLEEVEC [Suspect]
     Indication: CHRONIC MYELOID LEUKAEMIA
     Dosage: 400 MG, BID
     Route: 048
  2. GLEEVEC [Suspect]
     Dosage: 600 MG/D
     Route: 048
     Dates: start: 20010325

REACTIONS (8)
  - ANXIETY [None]
  - CHRONIC MYELOID LEUKAEMIA [None]
  - COMPULSIONS [None]
  - DELIRIUM [None]
  - DEPRESSION [None]
  - INSOMNIA [None]
  - LACRIMATION INCREASED [None]
  - SUICIDAL IDEATION [None]
